FAERS Safety Report 7188009-9 (Version None)
Quarter: 2010Q4

REPORT INFORMATION
  Report Type: 
  Country: None (occurrence: None)
  Receive Date: 20101222
  Receipt Date: 20101214
  Transmission Date: 20110411
  Serious: Yes (Hospitalization, Other)
  Sender: FDA-Public Use
  Company Number: JP-PFIZER INC-2010158046

PATIENT
  Age: 74 Year
  Sex: Male
  Weight: 49 kg

DRUGS (11)
  1. AZULFIDINE [Suspect]
     Indication: RHEUMATOID ARTHRITIS
     Dosage: 1000 MG, 1X/DAY
     Route: 048
     Dates: start: 20100402, end: 20100404
  2. AZULFIDINE [Suspect]
     Dosage: 1250 MG, 1X/DAY
     Route: 048
     Dates: start: 20100405, end: 20100408
  3. AZULFIDINE [Suspect]
     Dosage: 1500 MG, 1X/DAY
     Route: 048
     Dates: start: 20100409, end: 20100415
  4. AZULFIDINE [Suspect]
     Dosage: 1750 MG, 1X/DAY
     Route: 048
     Dates: start: 20100416
  5. ASPIRIN [Suspect]
     Indication: RHEUMATOID ARTHRITIS
     Dosage: 2 G, 1X/DAY
     Route: 048
     Dates: start: 20100408, end: 20100419
  6. TAKEPRON [Concomitant]
     Indication: GASTRIC ULCER
     Dosage: 15 MG, 1X/DAY
     Route: 048
  7. LOXONIN [Concomitant]
     Indication: RHEUMATOID ARTHRITIS
     Dosage: 180 MG, 1X/DAY
     Route: 048
     Dates: end: 20100407
  8. PREDNISOLONE [Concomitant]
     Indication: INTERSTITIAL LUNG DISEASE
     Dosage: 10 MG, 1X/DAY
     Route: 048
  9. PREDNISOLONE [Concomitant]
     Indication: RHEUMATOID ARTHRITIS
  10. BAKTAR [Concomitant]
     Indication: PNEUMOCYSTIS JIROVECI PNEUMONIA
     Dosage: 1 DF, 1X/DAY
     Route: 048
  11. BAKTAR [Concomitant]
     Indication: PROPHYLAXIS

REACTIONS (3)
  - GENERALISED ERYTHEMA [None]
  - PYREXIA [None]
  - RASH [None]
